FAERS Safety Report 6772691-1 (Version None)
Quarter: 2010Q2

REPORT INFORMATION
  Report Type: 
  Country: None (occurrence: None)
  Receive Date: 20100616
  Receipt Date: 20100428
  Transmission Date: 20101027
  Serious: No
  Sender: FDA-Public Use
  Company Number: US-ASTRAZENECA-2010SE19123

PATIENT
  Sex: Female

DRUGS (3)
  1. PULMICORT RESPULES [Suspect]
     Indication: EMPHYSEMA
     Route: 055
     Dates: start: 20100201
  2. BUDESONIDE [Suspect]
     Indication: EMPHYSEMA
  3. ALBUTEROL [Suspect]
     Indication: EMPHYSEMA
     Dosage: FOUR TIMES A DAY
     Route: 055

REACTIONS (3)
  - COUGH [None]
  - DRUG INEFFECTIVE [None]
  - EMPHYSEMA [None]
